FAERS Safety Report 17420377 (Version 1)
Quarter: 2020Q1

REPORT INFORMATION
  Report Type: Spontaneous
  Country: US (occurrence: US)
  Receive Date: 20200214
  Receipt Date: 20200214
  Transmission Date: 20200409
  Serious: No
  Sender: FDA-Public Use
  Company Number: US-TEVA-2020-US-1184366

PATIENT
  Sex: Female

DRUGS (1)
  1. TRAMADOL HYDROCHLORIDE- TEVA [Suspect]
     Active Substance: TRAMADOL HYDROCHLORIDE
     Dosage: APPROXIMATELY 1 1/2 YEARS AGO, SHE WAS USING TEVA^S PRODUCT
     Route: 065

REACTIONS (4)
  - Abdominal discomfort [Recovered/Resolved]
  - Migraine [Recovered/Resolved]
  - Rash [Recovered/Resolved]
  - Product substitution issue [Unknown]
